FAERS Safety Report 8756514 (Version 3)
Quarter: 2012Q4

REPORT INFORMATION
  Report Type: 
  Country: US (occurrence: US)
  Receive Date: 20120828
  Receipt Date: 20121004
  Transmission Date: 20130627
  Serious: No
  Sender: FDA-Public Use
  Company Number: US-BIOGENIDEC-2012BI033043

PATIENT
  Age: 34 None
  Sex: Female

DRUGS (1)
  1. TYSABRI [Suspect]
     Indication: MULTIPLE SCLEROSIS
     Route: 042
     Dates: start: 20120820

REACTIONS (13)
  - Hydromyelia [Unknown]
  - Decreased appetite [Unknown]
  - Feeling cold [Unknown]
  - Night sweats [Unknown]
  - Pain [Not Recovered/Not Resolved]
  - Pain of skin [Not Recovered/Not Resolved]
  - Dysphonia [Not Recovered/Not Resolved]
  - Diarrhoea [Unknown]
  - Influenza like illness [Recovered/Resolved]
  - Fatigue [Not Recovered/Not Resolved]
  - Urinary tract infection [Unknown]
  - Oropharyngeal pain [Not Recovered/Not Resolved]
  - Nasopharyngitis [Not Recovered/Not Resolved]
